FAERS Safety Report 9375037 (Version 1)
Quarter: 2013Q2

REPORT INFORMATION
  Report Type: Spontaneous
  Country: US (occurrence: US)
  Receive Date: 20130628
  Receipt Date: 20130628
  Transmission Date: 20140414
  Serious: No
  Sender: FDA-Public Use
  Company Number: US-B.I. PHARMACEUTICALS,INC./RIDGEFIELD-2013-BI-18310BP

PATIENT
  Age: 58 Year
  Sex: Female
  Weight: 127 kg

DRUGS (6)
  1. MICARDIS [Suspect]
     Indication: HYPERTENSION
     Dosage: 80 MG
     Route: 048
     Dates: start: 2008
  2. MELOXICAM [Concomitant]
     Indication: JOINT SWELLING
     Dosage: 15 MG
     Route: 048
  3. ALBUTEROL INHALER [Concomitant]
     Indication: DYSPNOEA
     Dosage: (INHALATION AEROSOL)
     Route: 055
  4. RANITIDINE-GENERIC [Concomitant]
     Indication: DYSPEPSIA
     Dosage: 300 MG
     Route: 048
  5. ASPIRIN [Concomitant]
     Indication: CELLULITIS
     Dosage: 650 MG
     Route: 048
  6. PAXIL [Concomitant]
     Indication: DEPRESSION
     Dosage: 50 MG
     Route: 048

REACTIONS (1)
  - Age-related macular degeneration [Not Recovered/Not Resolved]
